FAERS Safety Report 20687802 (Version 1)
Quarter: 2022Q2

REPORT INFORMATION
  Report Type: Spontaneous
  Country: PR (occurrence: None)
  Receive Date: 20220408
  Receipt Date: 20220408
  Transmission Date: 20220721
  Serious: Yes (Other)
  Sender: FDA-Public Use
  Company Number: PR-MLMSERVICE-20210319-2793197-1

PATIENT
  Age: 87 Year
  Sex: Male

DRUGS (1)
  1. MEROPENEM [Suspect]
     Active Substance: MEROPENEM
     Indication: Sepsis
     Route: 065

REACTIONS (1)
  - Symmetrical drug-related intertriginous and flexural exanthema [Recovering/Resolving]
